FAERS Safety Report 7360635-3 (Version None)
Quarter: 2011Q1

REPORT INFORMATION
  Report Type: 
  Country: None (occurrence: None)
  Receive Date: 20110318
  Receipt Date: 20101221
  Transmission Date: 20110831
  Serious: Yes (Hospitalization)
  Sender: FDA-Public Use
  Company Number: US-BAYER-201035957NA

PATIENT
  Sex: Female
  Weight: 47.619 kg

DRUGS (2)
  1. YAZ [Suspect]
     Indication: CONTRACEPTION
     Route: 048
     Dates: start: 20071201, end: 20080901
  2. ZITHROMAX [Concomitant]
     Indication: ASTHMA

REACTIONS (1)
  - PULMONARY EMBOLISM [None]
